FAERS Safety Report 18260487 (Version 1)
Quarter: 2020Q3

REPORT INFORMATION
  Report Type: Spontaneous
  Country: HU (occurrence: HU)
  Receive Date: 20200914
  Receipt Date: 20200914
  Transmission Date: 20201103
  Serious: Yes (Other)
  Sender: FDA-Public Use
  Company Number: HU-TEVA-2020-HU-1823226

PATIENT
  Age: 69 Year
  Sex: Female

DRUGS (5)
  1. FRONTIN [Concomitant]
     Active Substance: ALPRAZOLAM
     Dosage: DOSE AND DOSAGE FORM NOT REPORTED
  2. SYNCUMAR MITE [Concomitant]
     Active Substance: ACENOCOUMAROL
     Dosage: DOSE AND DOSAGE FORM NOT REPORTED
  3. IBANDRONSAV TEVA [Suspect]
     Active Substance: IBANDRONATE SODIUM
     Indication: OSTEOPOROSIS
     Dosage: 3 MG
     Route: 042
     Dates: start: 20200714, end: 20200714
  4. EMOZUL [Concomitant]
     Active Substance: ESOMEPRAZOLE MAGNESIUM
     Dosage: DOSE AND DOSAGE FORM NOT REPORTED
  5. VALSARTAN SANDOZ [Concomitant]
     Active Substance: VALSARTAN
     Dosage: DOSE AND DOSAGE FORM NOT REPORTED

REACTIONS (10)
  - Angina pectoris [Not Recovered/Not Resolved]
  - Feeling abnormal [Not Recovered/Not Resolved]
  - Pyrexia [Unknown]
  - Vomiting [Unknown]
  - Pain in jaw [Unknown]
  - Arthralgia [Not Recovered/Not Resolved]
  - Abdominal pain upper [Unknown]
  - Bone pain [Not Recovered/Not Resolved]
  - Heart rate increased [Not Recovered/Not Resolved]
  - Heart rate increased [Unknown]

NARRATIVE: CASE EVENT DATE: 20200714
